FAERS Safety Report 7472895-9 (Version None)
Quarter: 2011Q2

REPORT INFORMATION
  Report Type: 
  Country: None (occurrence: None)
  Receive Date: 20110511
  Receipt Date: 20110505
  Transmission Date: 20111010
  Serious: Yes (Death, Hospitalization)
  Sender: FDA-Public Use
  Company Number: US-EISAI INC-E7273-00230-CLI-US

PATIENT
  Sex: Male
  Weight: 67 kg

DRUGS (5)
  1. TARGRETIN [Suspect]
     Route: 048
     Dates: start: 20101228
  2. FISH OIL [Concomitant]
     Route: 048
  3. TRICOR [Concomitant]
     Route: 048
     Dates: start: 20101130
  4. SIMVASTATIN [Concomitant]
     Route: 048
  5. IRON [Concomitant]
     Route: 048
     Dates: start: 20100715

REACTIONS (1)
  - ANAEMIA [None]
